FAERS Safety Report 20579873 (Version 3)
Quarter: 2022Q2

REPORT INFORMATION
  Report Type: Report from Study
  Country: FR (occurrence: FR)
  Receive Date: 20220310
  Receipt Date: 20220509
  Transmission Date: 20220721
  Serious: Yes (Other)
  Sender: FDA-Public Use
  Company Number: FR-PFIZER INC-202200350659

PATIENT
  Age: 82 Year
  Sex: Female
  Weight: 55 kg

DRUGS (3)
  1. IBRANCE [Suspect]
     Active Substance: PALBOCICLIB
     Dosage: 125 MG (3 WEEKS/4)
     Dates: start: 20200124, end: 20200212
  2. IBRANCE [Suspect]
     Active Substance: PALBOCICLIB
     Dosage: 125 MG (3 WEEKS/4)
     Dates: start: 20200220, end: 20200728
  3. IBRANCE [Suspect]
     Active Substance: PALBOCICLIB
     Dosage: 100 MG (3 WEEKS/4)
     Dates: start: 20200728

REACTIONS (3)
  - Hypertensive crisis [Recovered/Resolved]
  - Hypertensive crisis [Recovered/Resolved]
  - Polyneuropathy [Not Recovered/Not Resolved]

NARRATIVE: CASE EVENT DATE: 20201013
